FAERS Safety Report 5456265-0 (Version None)
Quarter: 2007Q3

REPORT INFORMATION
  Report Type: 
  Country: None (occurrence: None)
  Receive Date: 20070918
  Receipt Date: 20070430
  Transmission Date: 20080115
  Serious: Yes (Other)
  Sender: FDA-Public Use
  Company Number: US-ASTRAZENECA-2006UW24577

PATIENT
  Sex: Female
  Weight: 47.7 kg

DRUGS (12)
  1. SEROQUEL [Suspect]
     Indication: SCHIZOPHRENIA
     Route: 048
  2. SEROQUEL [Suspect]
     Indication: BIPOLAR DISORDER
     Route: 048
  3. SEROQUEL [Suspect]
     Indication: DEPRESSION
     Route: 048
  4. ZYPREXA [Suspect]
  5. GEODON [Concomitant]
  6. HALDOL [Concomitant]
  7. NAVANE [Concomitant]
  8. RISPERDAL [Concomitant]
  9. SOLIAN [Concomitant]
  10. STELAZINE [Concomitant]
  11. THORAZINE [Concomitant]
  12. PERPHENAZINE [Concomitant]

REACTIONS (2)
  - DIABETES MELLITUS [None]
  - TARDIVE DYSKINESIA [None]
